FAERS Safety Report 18883891 (Version 1)
Quarter: 2021Q1

REPORT INFORMATION
  Report Type: Spontaneous
  Country: JP (occurrence: JP)
  Receive Date: 20210211
  Receipt Date: 20210211
  Transmission Date: 20210420
  Serious: Yes (Hospitalization)
  Sender: FDA-Public Use
  Company Number: JP-JNJFOC-20200901600

PATIENT
  Age: 69 Year
  Sex: Female
  Weight: 43.5 kg

DRUGS (17)
  1. UPTRAVI [Suspect]
     Active Substance: SELEXIPAG
     Route: 048
     Dates: end: 20200801
  2. FUROSEMIDE. [Concomitant]
     Active Substance: FUROSEMIDE
  3. FLUITRAN [Concomitant]
     Active Substance: TRICHLORMETHIAZIDE
  4. FEBURIC [Concomitant]
     Active Substance: FEBUXOSTAT
  5. TRACLEER [Concomitant]
     Active Substance: BOSENTAN
     Indication: PULMONARY ARTERIAL HYPERTENSION
     Dates: end: 20180919
  6. EPLERENONE. [Concomitant]
     Active Substance: EPLERENONE
  7. LIVACT [ISOLEUCINE;LEUCINE;VALINE] [Concomitant]
     Dates: end: 20181114
  8. WARFARIN [Concomitant]
     Active Substance: WARFARIN
  9. ADEMPAS [Suspect]
     Active Substance: RIOCIGUAT
  10. OPSUMIT [Concomitant]
     Active Substance: MACITENTAN
     Indication: PULMONARY ARTERIAL HYPERTENSION
     Route: 048
     Dates: start: 20180920
  11. TOLVAPTAN [Concomitant]
     Active Substance: TOLVAPTAN
  12. THYRADIN [Concomitant]
     Active Substance: LEVOTHYROXINE
  13. POTASSIUM CHLORIDE. [Concomitant]
     Active Substance: POTASSIUM CHLORIDE
  14. BROTIZOLAM [Concomitant]
     Active Substance: BROTIZOLAM
  15. UPTRAVI [Suspect]
     Active Substance: SELEXIPAG
     Indication: PULMONARY ARTERIAL HYPERTENSION
     Route: 048
     Dates: start: 20180731, end: 20200717
  16. ADEMPAS [Suspect]
     Active Substance: RIOCIGUAT
     Indication: PULMONARY ARTERIAL HYPERTENSION
     Dates: start: 20180618, end: 20200801
  17. DIART [Concomitant]
     Active Substance: AZOSEMIDE

REACTIONS (2)
  - Carbon dioxide increased [Unknown]
  - Pulmonary function test decreased [Recovered/Resolved]

NARRATIVE: CASE EVENT DATE: 20200717
